FAERS Safety Report 10161692 (Version 1)
Quarter: 2014Q2

REPORT INFORMATION
  Report Type: Spontaneous
  Country: IT (occurrence: None)
  Receive Date: 20140507
  Receipt Date: 20140507
  Transmission Date: 20141212
  Serious: Yes (Disabling)
  Sender: FDA-Public Use
  Company Number: AUR-APL-2014-05281

PATIENT
  Age: 43 Year
  Sex: Male
  Weight: 93 kg

DRUGS (2)
  1. MIRTAZAPINE [Suspect]
     Indication: DEPRESSION
     Route: 048
     Dates: start: 20130508, end: 20140417
  2. AMITRIPTYLINE (AMITRIPTYLINE) [Concomitant]

REACTIONS (2)
  - Dermatitis [None]
  - Urticaria [None]
